FAERS Safety Report 19918278 (Version 1)
Quarter: 2021Q4

REPORT INFORMATION
  Report Type: Spontaneous
  Country: US (occurrence: US)
  Receive Date: 20211005
  Receipt Date: 20211005
  Transmission Date: 20220303
  Serious: No
  Sender: FDA-Public Use
  Company Number: US-AMGEN INC.-USASP2021152285

PATIENT
  Sex: Female

DRUGS (2)
  1. AIMOVIG [Suspect]
     Active Substance: ERENUMAB-AOOE
     Indication: Product used for unknown indication
     Dosage: UNK
     Route: 065
  2. RIZATRIPTAN [Concomitant]
     Active Substance: RIZATRIPTAN
     Dosage: 10 MILLIGRAM
     Route: 065

REACTIONS (1)
  - Drug ineffective [Unknown]
